FAERS Safety Report 25172835 (Version 3)
Quarter: 2025Q3

REPORT INFORMATION
  Report Type: Report from Study
  Country: PE (occurrence: PE)
  Receive Date: 20250408
  Receipt Date: 20250714
  Transmission Date: 20251020
  Serious: Yes (Hospitalization, Other)
  Sender: AMGEN
  Company Number: PE-AMGEN-PERSP2024240617

PATIENT
  Age: 37 Year
  Sex: Female

DRUGS (12)
  1. ADALIMUMAB [Suspect]
     Active Substance: ADALIMUMAB
     Indication: Axial spondyloarthritis
     Dosage: 40 MILLIGRAM, Q2WK (EVERY 15 DAYS/15.00 DAYS)
     Route: 058
     Dates: start: 20240413
  2. ACETAMINOPHEN [Concomitant]
     Active Substance: ACETAMINOPHEN
     Indication: Spondyloarthropathy
  3. VITAMIN A [Concomitant]
     Active Substance: VITAMIN A
  4. VITAMIN B [Concomitant]
     Active Substance: VITAMIN B
  5. VITAMIN C [Concomitant]
     Active Substance: ASCORBIC ACID
  6. VITAMIN D [Concomitant]
     Active Substance: VITAMIN D NOS
  7. VITAMIN E [Concomitant]
     Active Substance: .ALPHA.-TOCOPHEROL
  8. FOLIC ACID [Concomitant]
     Active Substance: FOLIC ACID
  9. CALCIUM [Concomitant]
     Active Substance: CALCIUM
  10. IRON [Concomitant]
     Active Substance: IRON
  11. ZINC [Concomitant]
     Active Substance: ZINC
  12. ACETAMINOPHEN [Concomitant]
     Active Substance: ACETAMINOPHEN

REACTIONS (6)
  - Gastric infection [Recovered/Resolved]
  - Type 2 diabetes mellitus [Unknown]
  - Gestational diabetes [Not Recovered/Not Resolved]
  - Arthralgia [Not Recovered/Not Resolved]
  - Maternal exposure during pregnancy [Unknown]
  - Ovarian cyst [Unknown]

NARRATIVE: CASE EVENT DATE: 20241001
